FAERS Safety Report 24532674 (Version 2)
Quarter: 2025Q4

REPORT INFORMATION
  Report Type: Report from Study
  Country: EU (occurrence: EU)
  Receive Date: 20241022
  Receipt Date: 20251111
  Transmission Date: 20260118
  Serious: Yes (Other)
  Sender: RANBAXY
  Company Number: EU-SUN PHARMACEUTICAL INDUSTRIES LTD-2024R1-430771

PATIENT
  Age: 18 Year
  Sex: Female

DRUGS (10)
  1. CYCLOSPORINE [Suspect]
     Active Substance: CYCLOSPORINE
     Indication: Juvenile idiopathic arthritis
     Dosage: 2,5-5 MG/KG/DAY
     Route: 065
  2. CYCLOSPORINE [Suspect]
     Active Substance: CYCLOSPORINE
     Indication: Uveitis
  3. METHOTREXATE [Suspect]
     Active Substance: METHOTREXATE
     Indication: Juvenile idiopathic arthritis
     Dosage: 15 MG/M2 WEEKLY
     Route: 065
  4. ADALIMUMAB [Suspect]
     Active Substance: ADALIMUMAB
     Indication: Juvenile idiopathic arthritis
     Dosage: 30-40 MG EVERY TWO WEEKS
     Route: 065
  5. ADALIMUMAB [Suspect]
     Active Substance: ADALIMUMAB
     Indication: Uveitis
  6. INFLIXIMAB [Suspect]
     Active Substance: INFLIXIMAB
     Indication: Juvenile idiopathic arthritis
     Dosage: UNK
     Route: 065
  7. INFLIXIMAB [Suspect]
     Active Substance: INFLIXIMAB
     Indication: Uveitis
     Dosage: 10 MG/KG
     Route: 042
  8. TOCILIZUMAB [Suspect]
     Active Substance: TOCILIZUMAB
     Indication: Juvenile idiopathic arthritis
     Dosage: 8 MILLIGRAM/KILOGRAM, QMO
     Route: 042
  9. TOCILIZUMAB [Suspect]
     Active Substance: TOCILIZUMAB
     Indication: Uveitis
     Dosage: 162 MILLIGRAM, Q2W
     Route: 058
  10. METHOTREXATE [Concomitant]
     Active Substance: METHOTREXATE
     Indication: Uveitis
     Dosage: 15 MILLIGRAM/SQ. METER
     Route: 065

REACTIONS (5)
  - Drug ineffective [Unknown]
  - Iris adhesions [Recovering/Resolving]
  - Lens disorder [Recovering/Resolving]
  - Cataract [Recovering/Resolving]
  - Anaphylactic reaction [Unknown]
